FAERS Safety Report 8570036-8 (Version None)
Quarter: 2012Q3

REPORT INFORMATION
  Report Type: 
  Country: None (occurrence: None)
  Receive Date: 20120803
  Receipt Date: 20120312
  Transmission Date: 20120928
  Serious: No
  Sender: FDA-Public Use
  Company Number: US-ABBOTT-12P-163-0914274-00

PATIENT
  Sex: Female
  Weight: 105.33 kg

DRUGS (8)
  1. FISH OIL [Concomitant]
     Indication: BLOOD CHOLESTEROL INCREASED
     Dosage: 2400 MG DAILY
  2. LISINOPRIL AND HYDROCHLOROTHIAZIDE [Concomitant]
     Indication: HYPERTENSION
     Dosage: 20/25 MG
     Route: 048
  3. NIASPAN [Suspect]
     Indication: HIGH DENSITY LIPOPROTEIN DECREASED
     Route: 048
     Dates: start: 20100101
  4. PRILOSEC [Concomitant]
     Indication: GASTROOESOPHAGEAL REFLUX DISEASE
  5. NIASPAN [Suspect]
     Dates: end: 20120201
  6. METFORMIN HYDROCHLORIDE [Concomitant]
     Indication: DIABETES MELLITUS
     Route: 048
  7. CALCIUM MAGNESIUM ZINC [Concomitant]
     Indication: OSTEOPOROSIS PROPHYLAXIS
  8. CRANBERRY SUPPLEMENT [Concomitant]
     Indication: PROPHYLAXIS URINARY TRACT INFECTION

REACTIONS (6)
  - FLUSHING [None]
  - ERYTHEMA [None]
  - GASTROENTERITIS VIRAL [None]
  - BLOOD GLUCOSE INCREASED [None]
  - PARAESTHESIA [None]
  - SKIN BURNING SENSATION [None]
